FAERS Safety Report 15414508 (Version 1)
Quarter: 2018Q3

REPORT INFORMATION
  Report Type: Spontaneous
  Country: US (occurrence: US)
  Receive Date: 20180921
  Receipt Date: 20180921
  Transmission Date: 20181010
  Serious: Yes (Other)
  Sender: FDA-Public Use
  Company Number: US-ABBVIE-18K-163-2490216-00

PATIENT

DRUGS (3)
  1. HUMIRA [Suspect]
     Active Substance: ADALIMUMAB
     Route: 058
  2. HUMIRA [Suspect]
     Active Substance: ADALIMUMAB
     Indication: CROHN^S DISEASE
     Route: 058
  3. REMICADE [Suspect]
     Active Substance: INFLIXIMAB
     Indication: CROHN^S DISEASE
     Route: 042

REACTIONS (12)
  - Fatigue [Unknown]
  - Colitis [Unknown]
  - Autoimmune disorder [Unknown]
  - Drug effect decreased [Unknown]
  - Disability [Unknown]
  - Crohn^s disease [Unknown]
  - Fear [Unknown]
  - Lupus-like syndrome [Unknown]
  - Chronic disease [Unknown]
  - Inflammatory bowel disease [Unknown]
  - Immunosuppression [Unknown]
  - Nervousness [Unknown]
